FAERS Safety Report 7951922 (Version 3)
Quarter: 2014Q1

REPORT INFORMATION
  Report Type: Report from Study
  Country: AR (occurrence: AR)
  Receive Date: 20110519
  Receipt Date: 20140303
  Transmission Date: 20141002
  Serious: Yes (Hospitalization)
  Sender: FDA-Public Use
  Company Number: AR-ROCHE-776700

PATIENT
  Age: 54 Year
  Sex: Female

DRUGS (8)
  1. PEG-INTERFERON ALFA 2A [Suspect]
     Indication: HEPATITIS C
     Route: 058
     Dates: start: 20110224, end: 20110428
  2. RIBAVIRIN [Suspect]
     Indication: HEPATITIS C
     Dosage: DOSE: 1000MG 1 DAY
     Route: 048
     Dates: start: 20110224, end: 20110415
  3. CEFALEXIN [Concomitant]
  4. ENALAPRIL [Concomitant]
     Route: 065
  5. OMEPRAZOLE [Concomitant]
     Route: 065
  6. ALPRAZOLAM [Concomitant]
     Route: 065
     Dates: start: 20110406, end: 20110426
  7. PAROXETINE [Concomitant]
     Route: 065
     Dates: start: 20110406, end: 20110426
  8. BMS-650032 [Suspect]
     Indication: HEPATITIS C
     Route: 048
     Dates: start: 20110224, end: 20110428

REACTIONS (3)
  - Hypertransaminasaemia [Recovered/Resolved]
  - Hyperbilirubinaemia [Recovered/Resolved]
  - Cystitis [Unknown]
